FAERS Safety Report 11544961 (Version 1)
Quarter: 2015Q3

REPORT INFORMATION
  Report Type: Spontaneous
  Country: US (occurrence: US)
  Receive Date: 20150924
  Receipt Date: 20150924
  Transmission Date: 20151125
  Serious: No
  Sender: FDA-Public Use
  Company Number: US-FRI-1000078332

PATIENT
  Sex: Male

DRUGS (4)
  1. FETZIMA [Suspect]
     Active Substance: LEVOMILNACIPRAN HYDROCHLORIDE
     Indication: DEPRESSION
     Dosage: 80MG
     Route: 048
     Dates: start: 201506
  2. FETZIMA [Suspect]
     Active Substance: LEVOMILNACIPRAN HYDROCHLORIDE
     Dosage: 40MG
     Route: 048
     Dates: start: 201506
  3. LYRICA [Concomitant]
     Active Substance: PREGABALIN
     Dosage: 500MG
     Route: 048
  4. KADIAN [Concomitant]
     Active Substance: MORPHINE SULFATE
     Dosage: 200MG
     Route: 048

REACTIONS (2)
  - Headache [Not Recovered/Not Resolved]
  - Hyperhidrosis [Not Recovered/Not Resolved]
